FAERS Safety Report 9661209 (Version 2)
Quarter: 2013Q4

REPORT INFORMATION
  Report Type: Report from Study
  Country: BE (occurrence: BE)
  Receive Date: 20131031
  Receipt Date: 20131031
  Transmission Date: 20140711
  Serious: Yes (Hospitalization)
  Sender: FDA-Public Use
  Company Number: BE-ABBVIE-13P-013-1156269-00

PATIENT
  Age: 22 Year
  Sex: Female
  Weight: 105 kg

DRUGS (4)
  1. HUMIRA [Suspect]
     Indication: CROHN^S DISEASE
     Route: 058
     Dates: start: 20130409
  2. AZATHIOPRINE [Suspect]
     Indication: CROHN^S DISEASE
     Route: 048
     Dates: start: 20130925, end: 20131011
  3. AZATHIOPRINE [Suspect]
     Route: 048
     Dates: start: 20131014, end: 20131014
  4. DESO 20 [Concomitant]
     Indication: CONTRACEPTION
     Dates: start: 201211

REACTIONS (2)
  - Abdominal pain upper [Not Recovered/Not Resolved]
  - Vomiting [Not Recovered/Not Resolved]
